FAERS Safety Report 16517440 (Version 1)
Quarter: 2019Q3

REPORT INFORMATION
  Report Type: Spontaneous
  Country: US (occurrence: US)
  Receive Date: 20190702
  Receipt Date: 20190702
  Transmission Date: 20191004
  Serious: Yes (Hospitalization)
  Sender: FDA-Public Use
  Company Number: US-BOIRON INC.-2019BOR00076

PATIENT
  Sex: Male
  Weight: 95.24 kg

DRUGS (6)
  1. ARSENICUM ALBUM 30C [Suspect]
     Active Substance: HOMEOPATHICS
     Indication: PRODUCT USED FOR UNKNOWN INDICATION
     Dosage: 5 PELLETS, AS DIRECTED ON CONTAINER
     Route: 048
     Dates: start: 2018
  2. ARSENICUM ALBUM 30C [Suspect]
     Active Substance: HOMEOPATHICS
     Dosage: 5 PELLETS, AS DIRECTED ON CONTAINER
     Route: 048
     Dates: start: 2018
  3. CAUSTICUM 30C [Suspect]
     Active Substance: CAUSTICUM
     Indication: PRODUCT USED FOR UNKNOWN INDICATION
     Dosage: 5 PELLETS, AS DIRECTED ON CONTAINER
     Route: 048
     Dates: start: 2018
  4. CAUSTICUM 6C [Suspect]
     Active Substance: CAUSTICUM
     Dosage: 5 PELLETS, AS DIRECTED ON CONTAINER
     Route: 048
     Dates: start: 2018
  5. ARSENICUM ALBUM 30C [Suspect]
     Active Substance: HOMEOPATHICS
     Dosage: 5 PELLETS, AS DIRECTED ON CONTAINER
     Route: 048
     Dates: start: 2018
  6. CAUSTICUM 6C [Suspect]
     Active Substance: CAUSTICUM
     Indication: PRODUCT USED FOR UNKNOWN INDICATION
     Dosage: 5 PELLETS, AS DIRECTED ON CONTAINER
     Route: 048
     Dates: start: 2018

REACTIONS (7)
  - Malaise [Recovering/Resolving]
  - Abdominal pain upper [Recovering/Resolving]
  - Vomiting [Recovering/Resolving]
  - Dysuria [Recovering/Resolving]
  - Suspected product tampering [Recovering/Resolving]
  - Diarrhoea [Recovering/Resolving]
  - Nausea [Recovering/Resolving]
